FAERS Safety Report 6519243-6 (Version None)
Quarter: 2009Q4

REPORT INFORMATION
  Report Type: 
  Country: None (occurrence: None)
  Receive Date: 20091228
  Receipt Date: 20091216
  Transmission Date: 20100525
  Serious: Yes (Other)
  Sender: FDA-Public Use
  Company Number: PHEH2009US16560

PATIENT
  Sex: Female

DRUGS (1)
  1. EXJADE [Suspect]
     Indication: REFRACTORY ANAEMIA
     Dosage: 2000 MG, DAILY
     Route: 048

REACTIONS (2)
  - ABDOMINAL DISCOMFORT [None]
  - LEUKAEMIA [None]
